FAERS Safety Report 7405611-7 (Version None)
Quarter: 2011Q2

REPORT INFORMATION
  Report Type: 
  Country: None (occurrence: None)
  Receive Date: 20110411
  Receipt Date: 20110406
  Transmission Date: 20111010
  Serious: Yes (Hospitalization)
  Sender: FDA-Public Use
  Company Number: PHHO2011MX06178

PATIENT
  Sex: Male
  Weight: 53.5 kg

DRUGS (10)
  1. BLINDED NO TREATMENT RECEIVED [Suspect]
     Indication: CARDIAC FAILURE CHRONIC
     Dosage: NO TREATMENT
  2. DIGOXIN [Concomitant]
     Indication: CARDIAC FAILURE
     Dosage: 0.25 MG, QID
     Dates: start: 20110217
  3. METOPROLOL [Concomitant]
     Indication: CARDIAC FAILURE
     Dosage: 25 MG, BID
     Dates: start: 20110217
  4. BLINDED LCZ696 [Suspect]
     Indication: CARDIAC FAILURE CHRONIC
     Dosage: NO TREATMENT
  5. ENALAPRIL MALEATE [Suspect]
     Indication: CARDIAC FAILURE CHRONIC
     Dosage: NO TREATMENT
  6. SPIRONOLACTONE [Concomitant]
     Indication: CARDIAC FAILURE
     Dosage: 25 MG, BID
     Dates: start: 20110217
  7. ENALAPRIL MALEATE [Concomitant]
     Indication: CARDIAC FAILURE
     Dosage: 10 MG, BID
     Dates: start: 20110217
  8. ENALAPRIL MALEATE [Suspect]
     Indication: CARDIAC FAILURE CHRONIC
     Dosage: UNK
  9. FUROSEMIDE [Concomitant]
     Indication: CARDIAC FAILURE
     Dosage: 40 MG, QID
     Dates: start: 20110217
  10. AMIODARONE HCL [Concomitant]
     Dosage: 200 MG, QID
     Dates: start: 20110217

REACTIONS (1)
  - CARDIAC FAILURE [None]
